FAERS Safety Report 4303970-5 (Version None)
Quarter: 2004Q1

REPORT INFORMATION
  Report Type: 
  Country: None (occurrence: None)
  Receive Date: 20040223
  Receipt Date: 20031103
  Transmission Date: 20041129
  Serious: No
  Sender: FDA-Public Use
  Company Number: PHEH2003US08951

PATIENT
  Age: 92 Year
  Sex: Female
  Weight: 173 kg

DRUGS (6)
  1. ZELNORM (TEGASEROD) TABLET [Suspect]
     Indication: IRRITABLE BOWEL SYNDROME
     Dosage: 6 MG, QD, ORAL
     Route: 048
     Dates: start: 20031001, end: 20031011
  2. UNITHROID [Concomitant]
  3. REMERON [Concomitant]
  4. DARVOCET-N (DEXTROPROPOXYPHENE NAPSILATE) [Concomitant]
  5. DIOVAN [Concomitant]
  6. AMBIEN [Concomitant]

REACTIONS (1)
  - RASH PRURITIC [None]
